FAERS Safety Report 23079200 (Version 3)
Quarter: 2023Q4

REPORT INFORMATION
  Report Type: Spontaneous
  Country: US (occurrence: US)
  Receive Date: 20231018
  Receipt Date: 20231201
  Transmission Date: 20240110
  Serious: Yes (Life-Threatening, Hospitalization, Other)
  Sender: FDA-Public Use
  Company Number: US-PFIZER INC-202300325006

PATIENT
  Age: 67 Year
  Sex: Male

DRUGS (1)
  1. ACETYLCYSTEINE [Suspect]
     Active Substance: ACETYLCYSTEINE
     Dosage: 100 MG

REACTIONS (5)
  - Therapy interrupted [Unknown]
  - Product availability issue [Unknown]
  - Myocardial infarction [Unknown]
  - Cardiac arrest [Unknown]
  - Infection [Unknown]
